FAERS Safety Report 23667892 (Version 2)
Quarter: 2024Q3

REPORT INFORMATION
  Report Type: Spontaneous
  Country: BR (occurrence: BR)
  Receive Date: 20240325
  Receipt Date: 20240911
  Transmission Date: 20241017
  Serious: Yes (Hospitalization, Other)
  Sender: UCB
  Company Number: BR-UCBSA-2024013687

PATIENT
  Age: 60 Year
  Sex: Female

DRUGS (9)
  1. KEPPRA [Suspect]
     Active Substance: LEVETIRACETAM
     Indication: Seizure cluster
     Dosage: 2 TABLETS OF 250 MG
  2. KEPPRA [Suspect]
     Active Substance: LEVETIRACETAM
     Dosage: 1500 MILLIGRAM, 2X/DAY (BID)
  3. KEPPRA [Suspect]
     Active Substance: LEVETIRACETAM
     Dosage: 6 TAB OF 250 IN MORNING AND 5 TAB OF 250 IN NIGHT
  4. KEPPRA [Suspect]
     Active Substance: LEVETIRACETAM
     Dosage: 1500 MILLIGRAM, 2X/DAY (BID) 2 TAB 750 MORNING AND EVENING
  5. KEPPRA [Suspect]
     Active Substance: LEVETIRACETAM
     Dosage: 6 TABLETS OF KEPPRA AT 7:30 IN THE MORNING AND 5 TABLETS OF KEPPRA AT 7:30 AT NIGHT.
  6. ANTARA [LEVETIRACETAM] [Concomitant]
     Indication: Product used for unknown indication
     Dosage: UNK
  7. HIDANTAL [PHENYTOIN] [Concomitant]
     Indication: Seizure
     Dosage: UNK
  8. CLOBAZAM [Concomitant]
     Active Substance: CLOBAZAM
     Indication: Product used for unknown indication
     Dosage: 10 MILLIGRAM, 1 TABLET
  9. CANDESARTAN CILEXETIL\HYDROCHLOROTHIAZIDE [Concomitant]
     Active Substance: CANDESARTAN CILEXETIL\HYDROCHLOROTHIAZIDE
     Indication: Blood pressure measurement
     Dosage: 16/12.5 MG ONCE DAILY (QD)

REACTIONS (12)
  - Illness [Unknown]
  - Seizure [Unknown]
  - Dysphonia [Unknown]
  - Tachyphrenia [Unknown]
  - Anticonvulsant drug level increased [Unknown]
  - Toxicity to various agents [Unknown]
  - Inability to afford medication [Unknown]
  - Therapy interrupted [Unknown]
  - Drug ineffective for unapproved indication [Unknown]
  - Therapeutic product effect incomplete [Unknown]
  - Product use issue [Unknown]
  - Off label use [Unknown]

NARRATIVE: CASE EVENT DATE: 20240828
